FAERS Safety Report 9297766 (Version 2)
Quarter: 2013Q2

REPORT INFORMATION
  Report Type: Report from Study
  Country: BR (occurrence: BR)
  Receive Date: 20130520
  Receipt Date: 20130617
  Transmission Date: 20140414
  Serious: Yes (Hospitalization, Other)
  Sender: FDA-Public Use
  Company Number: PHHY2013BR049896

PATIENT
  Age: 82 Year
  Sex: Male

DRUGS (6)
  1. DIOVAN AMLO FIX [Suspect]
     Indication: HYPERTENSION
     Dosage: 1 DF, (320MG VAL, 5MG AMLO), A DAY
     Route: 048
     Dates: end: 201303
  2. OMEPRAZOLE [Concomitant]
     Indication: GASTRITIS
     Dosage: 1 DF (20 MG), DAILY
     Route: 048
  3. CITALOPRAM [Concomitant]
     Indication: ANTIDEPRESSANT THERAPY
     Dosage: 1 DF (20 MG), DAILY
     Route: 048
  4. ASPIRINA PREVENT [Concomitant]
     Indication: ANTICOAGULANT THERAPY
     Dosage: 1 DF (100 MG), DAILY
     Route: 048
     Dates: start: 201304
  5. SPIRONOLACTONE [Concomitant]
     Dosage: 1 DF (25 MG), DAILY
     Route: 048
     Dates: start: 201304
  6. LOSARTAN POTASSIUM [Concomitant]
     Indication: HYPERTENSION
     Dosage: 2 DF, (50 MG) DAILY
     Route: 048
     Dates: start: 201304

REACTIONS (2)
  - Infarction [Recovered/Resolved]
  - Blood cholesterol increased [Unknown]
